FAERS Safety Report 5049141-9 (Version None)
Quarter: 2006Q3

REPORT INFORMATION
  Report Type: 
  Country: None (occurrence: None)
  Receive Date: 20060712
  Receipt Date: 20060324
  Transmission Date: 20061208
  Serious: Yes (Hospitalization)
  Sender: FDA-Public Use
  Company Number: US-GLAXOSMITHKLINE-A0598988A

PATIENT
  Sex: Female

DRUGS (3)
  1. IMITREX [Suspect]
     Indication: MIGRAINE
     Dosage: 100MG VARIABLE DOSE
     Route: 048
  2. TOPAMAX [Concomitant]
  3. AMITRIPTYLINE HCL [Concomitant]

REACTIONS (3)
  - DEHYDRATION [None]
  - DRUG INEFFECTIVE [None]
  - VOMITING [None]
